FAERS Safety Report 17540787 (Version 1)
Quarter: 2020Q1

REPORT INFORMATION
  Report Type: Spontaneous
  Country: US (occurrence: US)
  Receive Date: 20200313
  Receipt Date: 20200313
  Transmission Date: 20200409
  Serious: Yes (Death, Other)
  Sender: FDA-Public Use
  Company Number: US-BRISTOL-MYERS SQUIBB COMPANY-BMS-2020-021886

PATIENT
  Age: 59 Year
  Sex: Male

DRUGS (4)
  1. OPDIVO [Suspect]
     Active Substance: NIVOLUMAB
     Indication: INTRAOCULAR MELANOMA
     Dosage: 80 MILLIGRAM, Q2WK
     Route: 042
  2. OPDIVO [Suspect]
     Active Substance: NIVOLUMAB
     Indication: HEPATIC CANCER
     Route: 065
  3. YERVOY [Suspect]
     Active Substance: IPILIMUMAB
     Indication: HEPATIC CANCER
     Route: 065
  4. YERVOY [Suspect]
     Active Substance: IPILIMUMAB
     Indication: INTRAOCULAR MELANOMA
     Dosage: 246 MILLIGRAM, Q2WK
     Route: 042

REACTIONS (2)
  - Death [Fatal]
  - Off label use [Unknown]

NARRATIVE: CASE EVENT DATE: 20190909
